FAERS Safety Report 10200298 (Version 1)
Quarter: 2014Q2

REPORT INFORMATION
  Report Type: Report from Study
  Country: DE (occurrence: DE)
  Receive Date: 20140527
  Receipt Date: 20140527
  Transmission Date: 20141212
  Serious: Yes (Hospitalization)
  Sender: FDA-Public Use
  Company Number: US-ASTRAZENECA-2014SE35314

PATIENT
  Age: 10 Month
  Sex: Female

DRUGS (1)
  1. PALIVIZUMAB [Suspect]
     Indication: BRONCHOPULMONARY DYSPLASIA
     Route: 030
     Dates: start: 20131129, end: 20140328

REACTIONS (1)
  - Bronchitis [Recovered/Resolved]
